FAERS Safety Report 6289680-6 (Version None)
Quarter: 2009Q3

REPORT INFORMATION
  Report Type: 
  Country: None (occurrence: None)
  Receive Date: 20090730
  Receipt Date: 20080627
  Transmission Date: 20100115
  Serious: No
  Sender: FDA-Public Use
  Company Number: US-BRISTOL-MYERS SQUIBB COMPANY-14225130

PATIENT
  Age: 84 Year
  Sex: Male
  Weight: 60 kg

DRUGS (7)
  1. COUMADIN [Suspect]
     Dosage: 1 DOSAGE FORM: 5MG DAILY ALTERNATING WITH 7.5MG DAILY
     Dates: start: 20080101, end: 20080101
  2. LIPITOR [Concomitant]
  3. ALTACE [Concomitant]
  4. XANAX [Concomitant]
  5. PLAVIX [Concomitant]
  6. ASPIRIN [Concomitant]
  7. FLOMAX [Concomitant]

REACTIONS (1)
  - HAEMATURIA [None]
